FAERS Safety Report 8470854 (Version 3)
Quarter: 2013Q4

REPORT INFORMATION
  Report Type: Spontaneous
  Country: FR (occurrence: FR)
  Receive Date: 20120321
  Receipt Date: 20131029
  Transmission Date: 20140711
  Serious: Yes (Hospitalization)
  Sender: FDA-Public Use
  Company Number: FR-ASTRAZENECA-2012SE17856

PATIENT
  Age: 75 Year
  Sex: Male

DRUGS (3)
  1. ZESTRIL [Suspect]
     Indication: HYPERTENSION
     Route: 048
     Dates: end: 201111
  2. ZOFENILDUO [Suspect]
     Indication: HYPERTENSION
     Dosage: 30 MG/ 12.5 MG, 1 DF DAILY
     Route: 048
     Dates: start: 201111, end: 201201
  3. INNOVAIR [Concomitant]
     Indication: BRONCHITIS CHRONIC
     Dosage: 100/6 MICROGRAMS PER DOSE
     Route: 055

REACTIONS (3)
  - Eczema [Recovering/Resolving]
  - Eosinophilia [Recovering/Resolving]
  - Rash maculo-papular [Recovering/Resolving]
